FAERS Safety Report 9508505 (Version 1)
Quarter: 2013Q3

REPORT INFORMATION
  Report Type: Spontaneous
  Country: GB (occurrence: GB)
  Receive Date: 20130909
  Receipt Date: 20130909
  Transmission Date: 20140515
  Serious: Yes (Hospitalization, Other)
  Sender: FDA-Public Use
  Company Number: GB-TEVA-429708ISR

PATIENT
  Age: 76 Year
  Sex: Female

DRUGS (11)
  1. TRIMETHOPRIM [Suspect]
     Indication: URINARY TRACT INFECTION
     Dosage: 400 MILLIGRAM DAILY; ACUTE COURSE
     Route: 048
     Dates: start: 20120606, end: 20120614
  2. HUMULIN [Concomitant]
  3. CITALOPRAM [Concomitant]
  4. CALCICHEW D3 [Concomitant]
     Dosage: 1 DOSAGE FORMS DAILY; TAKEN IN THE MORNING
  5. AMLODIPINE [Concomitant]
     Dosage: 5 MILLIGRAM DAILY;
  6. LANSOPRAZOLE [Concomitant]
     Dosage: 30 MILLIGRAM DAILY;
  7. SIMVASTATIN [Concomitant]
     Dosage: 40 MILLIGRAM DAILY;
  8. METFORMIN [Concomitant]
     Dosage: 1700 MILLIGRAM DAILY;
  9. SERETIDE [Concomitant]
  10. HYDROXOCOBALAMIN [Concomitant]
  11. ARANESP [Concomitant]

REACTIONS (5)
  - Hyperkalaemia [Recovered/Resolved]
  - Renal failure acute [Unknown]
  - Dehydration [Unknown]
  - Renal failure acute [Recovered/Resolved]
  - Tremor [Unknown]
